FAERS Safety Report 21722510 (Version 1)
Quarter: 2022Q4

REPORT INFORMATION
  Report Type: Spontaneous
  Country: DE (occurrence: DE)
  Receive Date: 20221213
  Receipt Date: 20221213
  Transmission Date: 20230112
  Serious: Yes (Hospitalization)
  Sender: FDA-Public Use
  Company Number: DE-ADRED-04520-03

PATIENT
  Age: 86 Year
  Sex: Female

DRUGS (7)
  1. HYDROCHLOROTHIAZIDE [Suspect]
     Active Substance: HYDROCHLOROTHIAZIDE
     Indication: Product used for unknown indication
     Dosage: 12.5 MG, 12.5 MG, 1-0-0-0, TABLET
     Route: 065
  2. SIMVASTATIN [Concomitant]
     Active Substance: SIMVASTATIN
     Dosage: 20 MG, QD, 20 MG, 0-0-1-0, TABLET
     Route: 065
  3. APIXABAN [Concomitant]
     Active Substance: APIXABAN
     Dosage: 2.5 MG, 2.5 MG, 1-0-1-0, TABLET
     Route: 065
  4. BISOPROLOL [Concomitant]
     Active Substance: BISOPROLOL
     Dosage: 5 MG, 5 MG, 1-0-1-0, TABLET
     Route: 065
  5. CHOLECALCIFEROL [Concomitant]
     Active Substance: CHOLECALCIFEROL
     Dosage: 1000 INTERNATIONAL UNIT, 1000 IE, 1-0-0-0, TABLET
     Route: 065
  6. RAMIPRIL [Concomitant]
     Active Substance: RAMIPRIL
     Dosage: 1.25 MILLIGRAM, 1.25 MG, 1-0-0-0, TABLET
     Route: 065
  7. KALINOR-RETARD P [Concomitant]
     Dosage: 600 MG, 600 MG, 2-2-2-0, TABLET
     Route: 065

REACTIONS (8)
  - Sedation [Unknown]
  - Syncope [Unknown]
  - Skin pressure mark [Unknown]
  - Shock [Unknown]
  - Fatigue [Unknown]
  - Tachycardia [Unknown]
  - Hypotension [Unknown]
  - Electrolyte imbalance [Unknown]
